FAERS Safety Report 10180225 (Version 1)
Quarter: 2014Q2

REPORT INFORMATION
  Report Type: Spontaneous
  Country: SA (occurrence: None)
  Receive Date: 20140515
  Receipt Date: 20140515
  Transmission Date: 20141212
  Serious: Yes (Other)
  Sender: FDA-Public Use
  Company Number: FK201401727

PATIENT
  Age: 29 Year
  Sex: Male
  Weight: 75 kg

DRUGS (10)
  1. BUPIVACAINE (MANUFACTURER UNKNOWN) (BUPIVACAINE) (BUPIVACAINE) [Suspect]
     Indication: NERVE BLOCK
     Dosage: 10 ML, IN OPERATING ROOM, OTHER
     Route: 050
  2. BUPIVACAINE (MANUFACTURER UNKNOWN) (BUPIVACAINE) (BUPIVACAINE) [Suspect]
     Indication: ANALGESIC THERAPY
     Dosage: 10 ML, IN OPERATING ROOM, OTHER
     Route: 050
  3. LORAZEPAM (LORAZEPAM) [Concomitant]
  4. MIDAZOLAM (MIDAZOLAM) [Concomitant]
  5. POVIDONE IODINE (POVIDONE-IODINE) [Concomitant]
  6. LIDOCAINE (LIDOCAINE) [Concomitant]
  7. NORMAL SALINE (SODIUM CHLORIDE) [Concomitant]
  8. PROPOFOL (PROPOFOL) [Concomitant]
  9. FENTANYL (FENTANYL) [Concomitant]
  10. CISATRACURIUM (CISATRACURIUM) [Concomitant]

REACTIONS (6)
  - Horner^s syndrome [None]
  - Miosis [None]
  - Eyelid ptosis [None]
  - Enophthalmos [None]
  - Anhidrosis [None]
  - Conjunctival hyperaemia [None]
